FAERS Safety Report 14923716 (Version 2)
Quarter: 2018Q3

REPORT INFORMATION
  Report Type: Report from Study
  Country: None (occurrence: DE)
  Receive Date: 20180522
  Receipt Date: 20180814
  Transmission Date: 20181010
  Serious: Yes (Hospitalization, Other)
  Sender: FDA-Public Use
  Company Number: DE-ABBVIE-18K-062-2359290-00

PATIENT
  Sex: Female

DRUGS (4)
  1. ESCITALOPRAM [Concomitant]
     Active Substance: ESCITALOPRAM OXALATE
     Indication: PRODUCT USED FOR UNKNOWN INDICATION
  2. HUMIRA [Suspect]
     Active Substance: ADALIMUMAB
     Indication: ANKYLOSING SPONDYLITIS
     Route: 058
  3. TILIDIN [Concomitant]
     Active Substance: NALOXONE HYDROCHLORIDE\TILIDINE HYDROCHLORIDE
     Indication: PRODUCT USED FOR UNKNOWN INDICATION
     Dosage: NOCTE
     Dates: start: 2010
  4. HUMIRA [Suspect]
     Active Substance: ADALIMUMAB
     Indication: ANKYLOSING SPONDYLITIS
     Route: 058
     Dates: start: 2009

REACTIONS (14)
  - Pseudomonas infection [Unknown]
  - Gastric ulcer [Unknown]
  - Photosensitivity reaction [Not Recovered/Not Resolved]
  - Nasopharyngitis [Recovered/Resolved]
  - Skin cancer [Recovered/Resolved]
  - Allergy to arthropod sting [Recovered/Resolved]
  - Infection [Not Recovered/Not Resolved]
  - Implant site inflammation [Not Recovered/Not Resolved]
  - Dental cyst [Not Recovered/Not Resolved]
  - Tooth repair [Not Recovered/Not Resolved]
  - Headache [Not Recovered/Not Resolved]
  - Syncope [Unknown]
  - Helicobacter infection [Recovering/Resolving]
  - Urinary tract infection [Recovering/Resolving]

NARRATIVE: CASE EVENT DATE: 2013
